FAERS Safety Report 8246408 (Version 4)
Quarter: 2012Q4

REPORT INFORMATION
  Report Type: Spontaneous
  Country: US (occurrence: None)
  Receive Date: 20111108
  Receipt Date: 20120820
  Transmission Date: 20130627
  Serious: Yes (Congenital Anomaly)
  Sender: FDA-Public Use
  Company Number: ADR-UNK-041

PATIENT
  Age: 252 Day
  Sex: Male
  Weight: 425.2 kg

DRUGS (5)
  1. ZIDOVUDINE [Suspect]
     Indication: ACQUIRED IMMUNODEFICIENCY SYNDROME
     Dosage: BID
     Dates: start: 20110915, end: 20110915
  2. DARUNAVIR HYDRATE [Concomitant]
  3. RITONAVIR [Concomitant]
  4. LAMIVUDINE\ZIDOVUDINE [Concomitant]
  5. LOPINAVIR\RITONAVIR [Concomitant]

REACTIONS (3)
  - FOETAL GROWTH RESTRICTION [None]
  - PREMATURE BABY [None]
  - MATERNAL DRUGS AFFECTING FOETUS [None]
